FAERS Safety Report 8416703 (Version 3)
Quarter: 2022Q3

REPORT INFORMATION
  Report Type: Spontaneous
  Country: JP (occurrence: JP)
  Receive Date: 20120220
  Receipt Date: 20220819
  Transmission Date: 20221027
  Serious: Yes (Other)
  Sender: FDA-Public Use
  Company Number: JP-BRACCO-005641

PATIENT
  Age: 66 Year
  Sex: Male

DRUGS (3)
  1. IOPAMIRON [Suspect]
     Active Substance: IOPAMIDOL
     Indication: Computerised tomogram liver
     Dosage: 100 ML, ONCE
     Route: 042
     Dates: start: 200803, end: 200803
  2. TIARAMIDE HYDROCHLORIDE [Concomitant]
     Active Substance: TIARAMIDE HYDROCHLORIDE
     Indication: Oral herpes
     Dosage: DAILY DOSE 300 MG
     Route: 048
     Dates: start: 2006
  3. VIDARABINE [Concomitant]
     Active Substance: VIDARABINE
     Indication: Oral herpes
     Dosage: DAILY DOSE 30 MG
     Route: 003
     Dates: start: 2006, end: 2008

REACTIONS (1)
  - Fixed eruption [Recovered/Resolved]

NARRATIVE: CASE EVENT DATE: 20080301
